FAERS Safety Report 20680809 (Version 2)
Quarter: 2022Q3

REPORT INFORMATION
  Report Type: Spontaneous
  Country: US (occurrence: US)
  Receive Date: 20220406
  Receipt Date: 20220711
  Transmission Date: 20221027
  Serious: No
  Sender: FDA-Public Use
  Company Number: US-PFIZER INC-202200360450

PATIENT
  Age: 59 Year
  Sex: Female

DRUGS (2)
  1. IBRANCE [Suspect]
     Active Substance: PALBOCICLIB
     Dosage: 125 MG, CYCLIC (TAKE 1 (125MG) TABLET BY MOUTH ONCE A DAY FOR 21 DAYS ON 7 DAYS OFF)
     Route: 048
     Dates: start: 20220211, end: 20220211
  2. IBRANCE [Suspect]
     Active Substance: PALBOCICLIB
     Dosage: 100 MG, (CYCLIC:TAKE 1 TABLET ONCE A DAY FOR 21 DAYS THEN OFF FOR 7 DAYS)

REACTIONS (8)
  - Headache [Not Recovered/Not Resolved]
  - Insomnia [Not Recovered/Not Resolved]
  - Contusion [Not Recovered/Not Resolved]
  - Lower respiratory tract infection [Not Recovered/Not Resolved]
  - Respiration abnormal [Not Recovered/Not Resolved]
  - Cough [Not Recovered/Not Resolved]
  - Abscess oral [Unknown]
  - Illness [Unknown]

NARRATIVE: CASE EVENT DATE: 20220101
